FAERS Safety Report 5846175-9 (Version None)
Quarter: 2008Q3

REPORT INFORMATION
  Report Type: 
  Country: None (occurrence: None)
  Receive Date: 20080814
  Receipt Date: 20080804
  Transmission Date: 20090109
  Serious: Yes (Disabling)
  Sender: FDA-Public Use
  Company Number: GB-ABBOTT-08P-167-0465570-00

PATIENT
  Sex: Male
  Weight: 81 kg

DRUGS (6)
  1. HUMIRA [Suspect]
     Indication: SMALL INTESTINE ULCER
     Route: 058
     Dates: start: 20080110
  2. HUMIRA [Suspect]
     Indication: SMALL INTESTINAL STENOSIS
  3. FOLIC ACID [Concomitant]
     Indication: DRUG USE FOR UNKNOWN INDICATION
     Route: 048
     Dates: start: 20080501
  4. CALCICHEW DE FORTE [Concomitant]
     Indication: DRUG USE FOR UNKNOWN INDICATION
     Route: 048
     Dates: start: 20080501
  5. FERROUS SULFATE TAB [Concomitant]
     Indication: DRUG USE FOR UNKNOWN INDICATION
     Route: 048
     Dates: start: 20080401
  6. CODEINE PHOSPHATE [Concomitant]
     Indication: DRUG USE FOR UNKNOWN INDICATION
     Route: 048

REACTIONS (3)
  - DISORIENTATION [None]
  - SEASONAL ALLERGY [None]
  - SOMNOLENCE [None]
